FAERS Safety Report 11956029 (Version 1)
Quarter: 2016Q1

REPORT INFORMATION
  Report Type: Spontaneous
  Country: FR (occurrence: FR)
  Receive Date: 20160126
  Receipt Date: 20160126
  Transmission Date: 20160526
  Serious: Yes (Other)
  Sender: FDA-Public Use
  Company Number: FR-PFIZER INC-2016034538

PATIENT
  Age: 58 Year
  Sex: Male

DRUGS (2)
  1. CIFLOX /00697201/ [Suspect]
     Active Substance: CIPROFLOXACIN
     Indication: ORCHITIS
     Dosage: 250 MG, 2X/DAY
     Route: 048
     Dates: start: 20150319, end: 20150320
  2. ZITHROMAX [Suspect]
     Active Substance: AZITHROMYCIN DIHYDRATE
     Dosage: 1 G, SINGLE
     Route: 048
     Dates: start: 20150319, end: 20150319

REACTIONS (3)
  - Anxiety [Recovered/Resolved]
  - Panic disorder [Recovered/Resolved]
  - Depression [Recovered/Resolved]

NARRATIVE: CASE EVENT DATE: 20150320
